FAERS Safety Report 12587193 (Version 3)
Quarter: 2017Q1

REPORT INFORMATION
  Report Type: Report from Study
  Country: JP (occurrence: JP)
  Receive Date: 20160725
  Receipt Date: 20170324
  Transmission Date: 20170428
  Serious: Yes (Hospitalization, Other)
  Sender: FDA-Public Use
  Company Number: JP-ACTELION-A-CH2016-139457

PATIENT
  Age: 48 Year
  Sex: Male

DRUGS (30)
  1. EPOPROSTENOL ACT [Suspect]
     Active Substance: EPOPROSTENOL
     Indication: PULMONARY ARTERIAL HYPERTENSION
     Dosage: 0.25 NG/KG, PER MIN
     Route: 042
     Dates: start: 20130822
  2. EPOPROSTENOL ACT [Suspect]
     Active Substance: EPOPROSTENOL
     Dosage: 16.0 NG/KG, PER MIN
     Route: 042
     Dates: start: 20130919
  3. EPOPROSTENOL ACT [Suspect]
     Active Substance: EPOPROSTENOL
     Dosage: 38.75 NG/KG, PER MIN
     Route: 042
     Dates: start: 20140704
  4. EPOPROSTENOL ACT [Suspect]
     Active Substance: EPOPROSTENOL
     Dosage: 48.33 UNK, UNK
     Route: 042
     Dates: start: 20141119
  5. VOLIBRIS [Suspect]
     Active Substance: AMBRISENTAN
     Dosage: 7.5 MG, QD
     Route: 048
     Dates: start: 20130925, end: 20130930
  6. EPOPROSTENOL ACT [Suspect]
     Active Substance: EPOPROSTENOL
     Dosage: 30 NG/KG, PER MIN
     Route: 042
     Dates: start: 20140128
  7. EPOPROSTENOL ACT [Suspect]
     Active Substance: EPOPROSTENOL
     Dosage: 40.0 NG/KG, PER MIN
     Route: 042
     Dates: start: 20140813
  8. VOLIBRIS [Suspect]
     Active Substance: AMBRISENTAN
     Indication: PULMONARY ARTERIAL HYPERTENSION
     Dosage: 5 MG, QD
     Route: 048
     Dates: start: 20130902, end: 20130924
  9. EPOPROSTENOL ACT [Suspect]
     Active Substance: EPOPROSTENOL
     Dosage: 51.67 NG/KG, PER MIN
     Route: 042
     Dates: start: 20141217
  10. DOBUTAMINE [Concomitant]
     Active Substance: DOBUTAMINE\DOBUTAMINE HYDROCHLORIDE
  11. EPOPROSTENOL ACT [Suspect]
     Active Substance: EPOPROSTENOL
     Dosage: 27.5 NG/KG, PER MIN
     Route: 042
     Dates: start: 20131016
  12. EPOPROSTENOL ACT [Suspect]
     Active Substance: EPOPROSTENOL
     Dosage: 35.0 NG/KG, PER MIN
     Route: 042
     Dates: start: 20140425
  13. EPOPROSTENOL ACT [Suspect]
     Active Substance: EPOPROSTENOL
     Dosage: 46.25 NG/KG, PER MIN
     Route: 042
     Dates: start: 20141022
  14. OXYGEN. [Concomitant]
     Active Substance: OXYGEN
  15. EPOPROSTENOL ACT [Suspect]
     Active Substance: EPOPROSTENOL
     Dosage: 28.3 NG/KG, PER MIN
     Route: 042
     Dates: start: 20131120
  16. EPOPROSTENOL ACT [Suspect]
     Active Substance: EPOPROSTENOL
     Dosage: 29.1 NG/KG, PER MIN
     Route: 042
     Dates: start: 20131218
  17. EPOPROSTENOL ACT [Suspect]
     Active Substance: EPOPROSTENOL
     Dosage: 37.5 NG/KG, PER MIN
     Route: 042
     Dates: start: 20140613
  18. EPOPROSTENOL ACT [Suspect]
     Active Substance: EPOPROSTENOL
     Dosage: 41.25 NG/KG, PER MIN
     Route: 042
     Dates: start: 20140924
  19. TRACLEER [Suspect]
     Active Substance: BOSENTAN
     Indication: PULMONARY ARTERIAL HYPERTENSION
     Dosage: 125 MG, QD
     Route: 048
     Dates: start: 20140420, end: 20140424
  20. VOLIBRIS [Suspect]
     Active Substance: AMBRISENTAN
     Dosage: 5 MG, BID
     Route: 048
     Dates: start: 20131001, end: 20131119
  21. AZELNIDIPINE [Concomitant]
     Active Substance: AZELNIDIPINE
  22. EPOPROSTENOL ACT [Suspect]
     Active Substance: EPOPROSTENOL
     Dosage: 33.4 NG/KG, PER MIN
     Route: 042
     Dates: start: 20140326
  23. AMPICILLIN [Suspect]
     Active Substance: AMPICILLIN
     Indication: INFECTION
     Dosage: UNK
     Route: 065
     Dates: start: 20150119
  24. AZOSEMIDE [Concomitant]
     Active Substance: AZOSEMIDE
  25. SPIRONOLACTONE. [Concomitant]
     Active Substance: SPIRONOLACTONE
  26. EPOPROSTENOL ACT [Suspect]
     Active Substance: EPOPROSTENOL
     Dosage: 31.6 NG/KG, PER MIN
     Route: 042
     Dates: start: 20140226
  27. TADALAFIL [Concomitant]
     Active Substance: TADALAFIL
  28. LANSOPRAZOLE. [Concomitant]
     Active Substance: LANSOPRAZOLE
  29. VOLIBRIS [Suspect]
     Active Substance: AMBRISENTAN
     Dosage: 2.5 MG, BID
     Route: 048
     Dates: start: 20131120, end: 20140419
  30. WARFARIN [Concomitant]
     Active Substance: WARFARIN

REACTIONS (31)
  - Febrile neutropenia [Recovered/Resolved]
  - Inflammation [Recovering/Resolving]
  - Catheter site granuloma [Recovering/Resolving]
  - Catheter site warmth [Recovering/Resolving]
  - Catheter management [Unknown]
  - Pyrexia [Recovered/Resolved]
  - Headache [Recovered/Resolved]
  - Pain in jaw [Recovered/Resolved]
  - Anaemia [Recovering/Resolving]
  - Red blood cell count decreased [Recovering/Resolving]
  - Renovascular hypertension [Not Recovered/Not Resolved]
  - Device related infection [Recovering/Resolving]
  - Pain in extremity [Recovered/Resolved]
  - Erythema [Recovered/Resolved]
  - Swelling face [Recovered/Resolved]
  - Concomitant disease aggravated [Recovered/Resolved]
  - Arthralgia [Recovered/Resolved]
  - Rash generalised [Recovered/Resolved]
  - Rash [Recovered/Resolved]
  - Hypertension [Not Recovered/Not Resolved]
  - Back pain [Recovered/Resolved]
  - Catheter site infection [Recovering/Resolving]
  - Toothache [Recovered/Resolved]
  - Diarrhoea [Recovering/Resolving]
  - Urticaria [Recovered/Resolved]
  - Drug eruption [Unknown]
  - Haematocrit decreased [Recovering/Resolving]
  - Hot flush [Recovering/Resolving]
  - Haemoglobin decreased [Recovering/Resolving]
  - Haematuria [Recovered/Resolved]
  - Catheter site erythema [Recovering/Resolving]

NARRATIVE: CASE EVENT DATE: 20130824
